FAERS Safety Report 9850467 (Version 1)
Quarter: 2014Q1

REPORT INFORMATION
  Report Type: Report from Study
  Country: CA (occurrence: CA)
  Receive Date: 20140128
  Receipt Date: 20140128
  Transmission Date: 20141002
  Serious: Yes (Disabling, Other)
  Sender: FDA-Public Use
  Company Number: CA-JNJFOC-20140112108

PATIENT
  Age: 52 Year
  Sex: Female
  Weight: 92 kg

DRUGS (10)
  1. REMICADE [Suspect]
     Indication: CROHN^S DISEASE
     Route: 042
     Dates: start: 20131210
  2. REMICADE [Suspect]
     Indication: CROHN^S DISEASE
     Route: 042
     Dates: start: 20131015
  3. REMICADE [Suspect]
     Indication: CROHN^S DISEASE
     Route: 042
     Dates: start: 20130815
  4. REMICADE [Suspect]
     Indication: CROHN^S DISEASE
     Route: 042
     Dates: start: 20130719
  5. REMICADE [Suspect]
     Indication: CROHN^S DISEASE
     Route: 042
     Dates: start: 20130704
  6. FOLIC ACID [Concomitant]
     Dosage: TO AID METHOTREXATE.
     Route: 065
  7. HYDROMORPHONE [Concomitant]
     Indication: PAIN
     Route: 065
  8. BUTRANS [Concomitant]
     Dosage: HELPS TO WEAN OFF HYDROPMORPHONE.
     Route: 065
  9. FRAGMIN [Concomitant]
     Indication: PULMONARY EMBOLISM
     Route: 065
  10. METHOTREXATE [Concomitant]
     Route: 048

REACTIONS (2)
  - Retinal vein occlusion [Not Recovered/Not Resolved]
  - Hypertension [Not Recovered/Not Resolved]
